FAERS Safety Report 6686675-5 (Version None)
Quarter: 2010Q2

REPORT INFORMATION
  Report Type: 
  Country: None (occurrence: None)
  Receive Date: 20100419
  Receipt Date: 20100409
  Transmission Date: 20101027
  Serious: Yes (Other)
  Sender: FDA-Public Use
  Company Number: US-ASTRAZENECA-2010SE15663

PATIENT
  Age: 80 Year
  Sex: Male

DRUGS (4)
  1. SYMBICORT [Suspect]
     Dosage: 160/4.5 UG, SOMETIMES ONE AND SOMETIMES TWO PUFFS
     Route: 055
  2. OXYGEN [Concomitant]
  3. IPATROPIUM BROMIDE [Concomitant]
  4. LOTRIL [Concomitant]

REACTIONS (7)
  - COUGH [None]
  - HEADACHE [None]
  - LUNG NEOPLASM MALIGNANT [None]
  - OROPHARYNGEAL PAIN [None]
  - POLLAKIURIA [None]
  - RHINORRHOEA [None]
  - SOMNOLENCE [None]
